FAERS Safety Report 7142642-9 (Version None)
Quarter: 2010Q4

REPORT INFORMATION
  Report Type: 
  Country: None (occurrence: None)
  Receive Date: 20101112
  Receipt Date: 20100915
  Transmission Date: 20110411
  Serious: No
  Sender: FDA-Public Use
  Company Number: 1000016285

PATIENT
  Age: 61 Year
  Sex: Female

DRUGS (11)
  1. SAVELLA [Suspect]
     Indication: FIBROMYALGIA
     Dosage: (12.5 MG (12.5 MG, 1 IN 1 D), ORAL) (25 MG (12.5 MG, 2 IN 1 D) ORAL) (50 MG (25 MG, 2 IN 1 D) ORAL)
     Route: 048
     Dates: start: 20100805, end: 20100805
  2. SAVELLA [Suspect]
     Indication: FIBROMYALGIA
     Dosage: (12.5 MG (12.5 MG, 1 IN 1 D), ORAL) (25 MG (12.5 MG, 2 IN 1 D) ORAL) (50 MG (25 MG, 2 IN 1 D) ORAL)
     Route: 048
     Dates: start: 20100806, end: 20100807
  3. SAVELLA [Suspect]
     Indication: FIBROMYALGIA
     Dosage: (12.5 MG (12.5 MG, 1 IN 1 D), ORAL) (25 MG (12.5 MG, 2 IN 1 D) ORAL) (50 MG (25 MG, 2 IN 1 D) ORAL)
     Route: 048
     Dates: start: 20100808, end: 20100811
  4. SAVELLA [Suspect]
     Indication: FIBROMYALGIA
     Dosage: (12.5 MG (12.5 MG, 1 IN 1 D), ORAL) (25 MG (12.5 MG, 2 IN 1 D) ORAL) (50 MG (25 MG, 2 IN 1 D) ORAL)
     Route: 048
     Dates: start: 20100812
  5. ZOLOFT [Concomitant]
  6. KLONOPIN [Concomitant]
  7. ADDERALL (OBETROL) [Concomitant]
  8. LOTREL [Concomitant]
  9. CRESTOR [Concomitant]
  10. SYNTHROID [Concomitant]
  11. ASPIRIN [Concomitant]

REACTIONS (7)
  - ANXIETY [None]
  - CONSTIPATION [None]
  - DIZZINESS [None]
  - FATIGUE [None]
  - HYPERHIDROSIS [None]
  - INSOMNIA [None]
  - IRRITABILITY [None]
